FAERS Safety Report 6042260-X (Version None)
Quarter: 2009Q1

REPORT INFORMATION
  Report Type: 
  Country: None (occurrence: None)
  Receive Date: 20090116
  Receipt Date: 20090107
  Transmission Date: 20090719
  Serious: Yes (Hospitalization, Other)
  Sender: FDA-Public Use
  Company Number: US-PFIZER INC-2005151019

PATIENT
  Sex: Female
  Weight: 20.5 kg

DRUGS (3)
  1. GEODON [Suspect]
     Indication: AGGRESSION
     Dosage: 60 MG, 1X/DAY
     Route: 065
     Dates: start: 20050822, end: 20050826
  2. CONCERTA [Concomitant]
     Route: 065
  3. CLONIDINE [Concomitant]
     Route: 065

REACTIONS (5)
  - AGITATION [None]
  - DYSKINESIA [None]
  - DYSTONIA [None]
  - MANIA [None]
  - RESTLESSNESS [None]
